FAERS Safety Report 9490069 (Version 1)
Quarter: 2013Q3

REPORT INFORMATION
  Report Type: Spontaneous
  Country: US (occurrence: US)
  Receive Date: 20130829
  Receipt Date: 20130829
  Transmission Date: 20140515
  Serious: No
  Sender: FDA-Public Use
  Company Number: US-009507513-1308USA013245

PATIENT
  Sex: 0

DRUGS (1)
  1. PROVENTIL [Suspect]
     Dosage: 2 DF, Q6H
     Route: 055

REACTIONS (3)
  - Drug dose omission [Unknown]
  - Product packaging issue [Unknown]
  - No adverse event [Unknown]
